FAERS Safety Report 8324588 (Version 3)
Quarter: 2012Q4

REPORT INFORMATION
  Report Type: 
  Country: US (occurrence: US)
  Receive Date: 20120106
  Receipt Date: 20120911
  Transmission Date: 20130627
  Serious: Yes (Hospitalization)
  Sender: FDA-Public Use
  Company Number: US-BAYER-2012-000102

PATIENT
  Age: 23 Year
  Sex: Female

DRUGS (4)
  1. YASMIN [Suspect]
     Indication: ACNE
     Dosage: UNK
     Dates: start: 200309, end: 201007
  2. YASMIN [Suspect]
     Indication: ACNE
     Dosage: UNK
     Dates: start: 200309, end: 201007
  3. YAZ [Suspect]
     Indication: ACNE
     Dosage: UNK
     Dates: start: 200309, end: 201007
  4. OCELLA [Suspect]
     Indication: ACNE
     Dosage: UNK
     Dates: start: 200309, end: 201007

REACTIONS (4)
  - Gallbladder disorder [None]
  - Injury [None]
  - Pain [None]
  - Emotional distress [None]
